FAERS Safety Report 24347095 (Version 1)
Quarter: 2024Q3

REPORT INFORMATION
  Report Type: Other
  Country: CA (occurrence: CA)
  Receive Date: 20240921
  Receipt Date: 20240921
  Transmission Date: 20241016
  Serious: Yes (Hospitalization)
  Sender: GLENMARK
  Company Number: CA-GLENMARK PHARMACEUTICALS-2024GMK094071

PATIENT

DRUGS (7)
  1. URSODIOL [Suspect]
     Active Substance: URSODIOL
     Indication: Cholestasis of pregnancy
     Dosage: UNK
     Route: 065
  2. TOPIRAMATE [Suspect]
     Active Substance: TOPIRAMATE
     Indication: Acute promyelocytic leukaemia
     Dosage: 50 MILLIGRAM, 2 EVERY 1 DAYS
     Route: 048
  3. ARSENIC TRIOXIDE [Suspect]
     Active Substance: ARSENIC TRIOXIDE
     Indication: Acute promyelocytic leukaemia
     Dosage: 0.15 MILLIGRAM PER KILOGRAM,  1 EVERY 1 DAYS
     Route: 065
  4. IDARUBICIN [Suspect]
     Active Substance: IDARUBICIN
     Indication: Acute promyelocytic leukaemia
     Dosage: 12 MILLIGRAM PER SQUARE METRE,  1 EVERY 1 DAYS
     Route: 065
  5. PREDNISONE [Suspect]
     Active Substance: PREDNISONE
     Indication: Acute promyelocytic leukaemia
     Dosage: 1 MILLIGRAM PER KILOGRAM, 1 EVERY 1 DAYS
     Route: 065
  6. TRETINOIN [Suspect]
     Active Substance: TRETINOIN
     Indication: Acute promyelocytic leukaemia
     Dosage: 45 MILLIGRAM PER SQUARE METRE,  1 EVERY 1 DAYS
     Route: 065
  7. TRETINOIN [Suspect]
     Active Substance: TRETINOIN
     Dosage: UNK
     Route: 065

REACTIONS (3)
  - Off label use [Unknown]
  - Maternal exposure during pregnancy [Unknown]
  - Normal newborn [Unknown]
